FAERS Safety Report 4950984-8 (Version None)
Quarter: 2006Q1

REPORT INFORMATION
  Report Type: 
  Country: None (occurrence: None)
  Receive Date: 20060201
  Receipt Date: 20051003
  Transmission Date: 20060701
  Serious: No
  Sender: FDA-Public Use
  Company Number: 2005PV002778

PATIENT
  Age: 70 Year
  Sex: Female
  Weight: 96.6162 kg

DRUGS (11)
  1. BYETTA [Suspect]
     Indication: DIABETES MELLITUS NON-INSULIN-DEPENDENT
     Dosage: 5 MCG; BID; SC
     Route: 058
     Dates: start: 20050924
  2. AVANDIA [Concomitant]
  3. NOVALOG [Concomitant]
  4. NOVALOG [Concomitant]
  5. PREVACID [Concomitant]
  6. METAMUCIL [Concomitant]
  7. PRAVACHOL [Concomitant]
  8. DILTIAZEM [Concomitant]
  9. NORVASC [Concomitant]
  10. HYDROCHLOROTHIAZIDE [Concomitant]
  11. GABAPENTIN [Concomitant]

REACTIONS (3)
  - BLOOD GLUCOSE DECREASED [None]
  - DECREASED APPETITE [None]
  - WEIGHT DECREASED [None]
